FAERS Safety Report 10089182 (Version 3)
Quarter: 2014Q2

REPORT INFORMATION
  Report Type: Report from Study
  Country: DK (occurrence: DK)
  Receive Date: 20140421
  Receipt Date: 20140502
  Transmission Date: 20141212
  Serious: Yes (Hospitalization)
  Sender: FDA-Public Use
  Company Number: DK-JNJFOC-20140411847

PATIENT
  Age: 38 Year
  Sex: Female
  Weight: 86.5 kg

DRUGS (4)
  1. GOLIMUMAB [Suspect]
     Indication: SPONDYLITIS
     Route: 058
     Dates: start: 20140217
  2. GOLIMUMAB [Suspect]
     Indication: SPONDYLITIS
     Dosage: ON 20-JAN-2014, 17-FEB-2014, THE SUBJECT RECEIVED STUDY DRUG GOLIMUMAB 50 MG VIA PREFILLED SYRINGE
     Route: 058
     Dates: start: 20130730
  3. NAPROXEN [Concomitant]
     Indication: SPONDYLITIS
     Route: 048
     Dates: start: 20121116
  4. TRAMADOL [Concomitant]
     Indication: SPONDYLITIS
     Route: 048
     Dates: start: 20121130

REACTIONS (1)
  - Migraine [Recovered/Resolved]
